APPROVED DRUG PRODUCT: INTELENCE
Active Ingredient: ETRAVIRINE
Strength: 100MG
Dosage Form/Route: TABLET;ORAL
Application: N022187 | Product #001 | TE Code: AB
Applicant: JANSSEN RESEARCH AND DEVELOPMENT LLC
Approved: Jan 18, 2008 | RLD: Yes | RS: No | Type: RX